FAERS Safety Report 25135152 (Version 1)
Quarter: 2025Q1

REPORT INFORMATION
  Report Type: Spontaneous
  Country: GB (occurrence: GB)
  Receive Date: 20250328
  Receipt Date: 20250328
  Transmission Date: 20250408
  Serious: Yes (Other)
  Sender: ANI
  Company Number: GB-ANIPHARMA-2025-UK-000058

PATIENT
  Sex: Male
  Weight: 93 kg

DRUGS (1)
  1. CANDESARTAN CILEXETIL [Suspect]
     Active Substance: CANDESARTAN CILEXETIL
     Indication: Hypertension
     Dates: start: 20240805

REACTIONS (1)
  - Renal pain [Unknown]
